FAERS Safety Report 10712394 (Version 2)
Quarter: 2015Q1

REPORT INFORMATION
  Report Type: Spontaneous
  Country: JP (occurrence: JP)
  Receive Date: 20150115
  Receipt Date: 20150119
  Transmission Date: 20150721
  Serious: Yes (Other)
  Sender: FDA-Public Use
  Company Number: JP-ROCHE-1521328

PATIENT
  Age: 78 Year
  Sex: Female

DRUGS (3)
  1. AVASTIN [Suspect]
     Active Substance: BEVACIZUMAB
     Indication: AGE-RELATED MACULAR DEGENERATION
     Dosage: DOSAGE IS UNCERTAIN.
     Route: 031
     Dates: start: 2008
  2. AFLIBERCEPT [Concomitant]
     Active Substance: AFLIBERCEPT
     Indication: AGE-RELATED MACULAR DEGENERATION
     Dosage: DOSAGE IS UNCERTAIN.
     Route: 031
     Dates: start: 201303
  3. RANIBIZUMAB [Concomitant]
     Active Substance: RANIBIZUMAB
     Indication: AGE-RELATED MACULAR DEGENERATION
     Dosage: DOSAGE IS UNCERTAIN.
     Route: 031

REACTIONS (4)
  - Cataract [Unknown]
  - Lenticular injury [Unknown]
  - Product use issue [Unknown]
  - Posterior capsule rupture [Unknown]

NARRATIVE: CASE EVENT DATE: 2014
